FAERS Safety Report 5983282-4 (Version None)
Quarter: 2008Q4

REPORT INFORMATION
  Report Type: 
  Country: None (occurrence: None)
  Receive Date: 20081208
  Receipt Date: 20080504
  Transmission Date: 20090506
  Serious: No
  Sender: FDA-Public Use
  Company Number: US-BAYER-200812137BCC

PATIENT
  Sex: Female
  Weight: 84 kg

DRUGS (3)
  1. ALEVE-D SINUS + COLD [Suspect]
     Indication: NASOPHARYNGITIS
     Route: 048
     Dates: start: 20080504
  2. 81 MG ENTERIC COATED ASPIRIN [Concomitant]
  3. OSTEO BI-FLEX [Concomitant]

REACTIONS (3)
  - RHINORRHOEA [None]
  - SINUS CONGESTION [None]
  - SINUS HEADACHE [None]
